FAERS Safety Report 11574998 (Version 1)
Quarter: 2015Q3

REPORT INFORMATION
  Report Type: Spontaneous
  Country: None (occurrence: None)
  Receive Date: 20150929
  Receipt Date: 20150929
  Transmission Date: 20151125
  Serious: Yes (Life-Threatening, Hospitalization)
  Sender: FDA-Public Use
  Company Number: None

PATIENT
  Age: 76 Year
  Sex: Male
  Weight: 90.7 kg

DRUGS (1)
  1. CONTRAST MEDIA [Suspect]
     Active Substance: UNSPECIFIED INGREDIENT
     Indication: COMPUTERISED TOMOGRAM
     Dates: start: 20150717, end: 20150717

REACTIONS (7)
  - Eye swelling [None]
  - Retching [None]
  - Throat tightness [None]
  - Lip swelling [None]
  - Pruritus [None]
  - Nausea [None]
  - Sneezing [None]

NARRATIVE: CASE EVENT DATE: 20150717
